FAERS Safety Report 4598201-5 (Version None)
Quarter: 2005Q1

REPORT INFORMATION
  Report Type: 
  Country: None (occurrence: None)
  Receive Date: 20050304
  Receipt Date: 20050222
  Transmission Date: 20050727
  Serious: Yes (Death, Other)
  Sender: FDA-Public Use
  Company Number: US-BRISTOL-MYERS SQUIBB COMPANY-12871711

PATIENT
  Age: 33 Year
  Sex: Male

DRUGS (6)
  1. STAVUDINE [Suspect]
     Indication: HIV INFECTION
  2. LAMIVUDINE [Suspect]
     Indication: HIV INFECTION
  3. INDINAVIR [Suspect]
     Indication: HIV INFECTION
  4. RITONAVIR [Concomitant]
     Indication: HIV INFECTION
  5. SAQUINAVIR [Concomitant]
     Indication: HIV INFECTION
  6. NEVIRAPINE [Concomitant]
     Indication: HIV INFECTION

REACTIONS (3)
  - IMMUNE RECONSTITUTION SYNDROME [None]
  - INFECTION [None]
  - PROGRESSIVE CEREBELLAR DEGENERATION [None]
